FAERS Safety Report 25311901 (Version 1)
Quarter: 2025Q2

REPORT INFORMATION
  Report Type: Spontaneous
  Country: JP (occurrence: JP)
  Receive Date: 20250514
  Receipt Date: 20250514
  Transmission Date: 20250716
  Serious: Yes (Death, Other)
  Sender: GILEAD
  Company Number: JP-GILEAD-2025-0713186

PATIENT
  Age: 82 Year

DRUGS (6)
  1. VEKLURY [Suspect]
     Active Substance: REMDESIVIR
     Indication: COVID-19
     Route: 041
  2. DEXAMETHASONE ACETATE [Concomitant]
     Active Substance: DEXAMETHASONE ACETATE
     Indication: COVID-19
     Route: 041
  3. HEPARIN SODIUM [Concomitant]
     Active Substance: HEPARIN SODIUM
     Indication: COVID-19
     Route: 041
  4. CEFTRIAXONE SODIUM [Concomitant]
     Active Substance: CEFTRIAXONE SODIUM
     Indication: Infection prophylaxis
     Route: 041
  5. OXYGEN [Concomitant]
     Active Substance: OXYGEN
     Indication: Pneumonia bacterial
  6. OXYGEN [Concomitant]
     Active Substance: OXYGEN
     Indication: COVID-19

REACTIONS (3)
  - Death [Fatal]
  - Rhabdomyolysis [Recovered/Resolved]
  - Pneumonia bacterial [Unknown]
